FAERS Safety Report 5711708-X (Version None)
Quarter: 2008Q2

REPORT INFORMATION
  Report Type: 
  Country: None (occurrence: None)
  Receive Date: 20080421
  Receipt Date: 20080411
  Transmission Date: 20081010
  Serious: Yes (Other)
  Sender: FDA-Public Use
  Company Number: GB-ASTRAZENECA-2008GB00709

PATIENT
  Age: 46 Year
  Sex: Female
  Weight: 94 kg

DRUGS (6)
  1. PROPOFOL [Suspect]
     Indication: GENERAL ANAESTHESIA
     Dosage: 0.5UG/KG
     Route: 042
  2. REMIFENTANIL [Suspect]
     Indication: GENERAL ANAESTHESIA
     Dosage: 6UG
     Route: 042
  3. AMOXICILLIN [Concomitant]
     Indication: RESPIRATORY TRACT INFECTION
     Dates: start: 20080115, end: 20080121
  4. BRICANYL [Concomitant]
     Indication: ASTHMA
     Route: 055
  5. CHLORAMPHENICOL [Concomitant]
     Indication: EYE INFECTION
     Dates: start: 20071121, end: 20071127
  6. PULMICORT [Concomitant]
     Route: 055

REACTIONS (15)
  - BRAIN INJURY [None]
  - CLUMSINESS [None]
  - COUGH [None]
  - DIZZINESS [None]
  - FATIGUE [None]
  - FEELING HOT [None]
  - HALLUCINATION [None]
  - HEADACHE [None]
  - INAPPROPRIATE AFFECT [None]
  - MALAISE [None]
  - MEMORY IMPAIRMENT [None]
  - PALPITATIONS [None]
  - PHARYNGOLARYNGEAL PAIN [None]
  - TREMOR [None]
  - VOMITING [None]
